FAERS Safety Report 24073239 (Version 1)
Quarter: 2024Q3

REPORT INFORMATION
  Report Type: Spontaneous
  Country: JP (occurrence: None)
  Receive Date: 20240710
  Receipt Date: 20240710
  Transmission Date: 20241017
  Serious: Yes (Hospitalization, Other)
  Sender: ASTRAZENECA
  Company Number: 2024A155610

PATIENT
  Age: 73 Year
  Sex: Male

DRUGS (6)
  1. IMFINZI [Suspect]
     Active Substance: DURVALUMAB
     Indication: Non-small cell lung cancer
     Dosage: DOSE UNKNOWN
     Route: 041
     Dates: start: 202304, end: 202304
  2. IMFINZI [Suspect]
     Active Substance: DURVALUMAB
     Indication: Non-small cell lung cancer
     Dosage: DOSE UNKNOWN
     Route: 041
     Dates: start: 2023
  3. IMJUDO [Suspect]
     Active Substance: TREMELIMUMAB\TREMELIMUMAB-ACTL
     Indication: Non-small cell lung cancer
     Dosage: DOSE UNKNOWN
     Route: 041
     Dates: start: 202304, end: 202304
  4. IMJUDO [Suspect]
     Active Substance: TREMELIMUMAB\TREMELIMUMAB-ACTL
     Indication: Non-small cell lung cancer
     Dosage: DOSE UNKNOWN
     Route: 041
     Dates: start: 2023
  5. PACLITAXEL [Suspect]
     Active Substance: PACLITAXEL
     Indication: Non-small cell lung cancer
     Dosage: DOSE UNKNOWN
     Route: 065
     Dates: start: 202304, end: 2023
  6. PACLITAXEL [Suspect]
     Active Substance: PACLITAXEL
     Indication: Non-small cell lung cancer
     Dosage: DOSE UNKNOWN
     Route: 065
     Dates: start: 2023

REACTIONS (1)
  - Pneumothorax [Unknown]

NARRATIVE: CASE EVENT DATE: 20231101
